FAERS Safety Report 18569871 (Version 1)
Quarter: 2020Q4

REPORT INFORMATION
  Report Type: Spontaneous
  Country: US (occurrence: US)
  Receive Date: 20201202
  Receipt Date: 20201202
  Transmission Date: 20210114
  Serious: Yes (Hospitalization)
  Sender: FDA-Public Use
  Company Number: None

PATIENT
  Age: 71 Year
  Sex: Male
  Weight: 89 kg

DRUGS (1)
  1. DULOXETINE HYDROCHLORIDE. [Suspect]
     Active Substance: DULOXETINE HYDROCHLORIDE
     Dates: end: 20201113

REACTIONS (4)
  - Cerebral infarction [None]
  - Hypoaesthesia [None]
  - Magnetic resonance imaging brain abnormal [None]
  - Hemiparesis [None]

NARRATIVE: CASE EVENT DATE: 20201114
